FAERS Safety Report 7968313-4 (Version None)
Quarter: 2011Q4

REPORT INFORMATION
  Report Type: 
  Country: None (occurrence: None)
  Receive Date: 20111209
  Receipt Date: 20111207
  Transmission Date: 20120403
  Serious: Yes (Death, Other)
  Sender: FDA-Public Use
  Company Number: PHHY2011CA91204

PATIENT
  Sex: Female

DRUGS (9)
  1. AFINITOR [Suspect]
     Indication: RENAL CELL CARCINOMA
     Dosage: 5 MG, DAILY
     Route: 048
     Dates: start: 20110913
  2. PERCOCET [Concomitant]
  3. ZOPICLONE [Concomitant]
  4. LANTUS [Concomitant]
  5. ATIVAN [Concomitant]
     Dosage: 0.5 UKN, PRN
     Route: 048
  6. VASOTEC [Concomitant]
     Dosage: 500 UKN, UNK
     Route: 048
  7. SENOKOT                                 /UNK/ [Suspect]
     Route: 048
  8. LIPITOR [Concomitant]
  9. COLACE [Concomitant]

REACTIONS (3)
  - MUCOSAL INFLAMMATION [None]
  - DEATH [None]
  - STOMATITIS [None]
